FAERS Safety Report 4319882-7 (Version None)
Quarter: 2004Q1

REPORT INFORMATION
  Report Type: 
  Country: None (occurrence: None)
  Receive Date: 20040319
  Receipt Date: 20040305
  Transmission Date: 20041129
  Serious: Yes (Hospitalization, Disabling)
  Sender: FDA-Public Use
  Company Number: PHBS2004JP03128

PATIENT
  Age: 55 Year
  Sex: Male
  Weight: 64 kg

DRUGS (1)
  1. TEGRETOL [Suspect]
     Indication: EPILEPSY
     Dosage: 200 MG, TID
     Route: 048
     Dates: start: 20000101, end: 20040304

REACTIONS (5)
  - DYSPNOEA EXACERBATED [None]
  - PCO2 DECREASED [None]
  - PO2 DECREASED [None]
  - PULMONARY EMBOLISM [None]
  - SYNCOPE [None]
